FAERS Safety Report 6024906-5 (Version None)
Quarter: 2008Q4

REPORT INFORMATION
  Report Type: 
  Country: None (occurrence: None)
  Receive Date: 20081231
  Receipt Date: 20081218
  Transmission Date: 20090506
  Serious: Yes (Hospitalization, Other)
  Sender: FDA-Public Use
  Company Number: JP-PFIZER INC-2008157929

PATIENT
  Age: 63 Year
  Sex: Female

DRUGS (1)
  1. SUNITINIB MALATE [Suspect]
     Dosage: UNK
     Route: 048
     Dates: start: 20080909, end: 20081201

REACTIONS (1)
  - DIVERTICULITIS [None]
